FAERS Safety Report 17564748 (Version 2)
Quarter: 2020Q1

REPORT INFORMATION
  Report Type: Spontaneous
  Country: NL (occurrence: NL)
  Receive Date: 20200320
  Receipt Date: 20200325
  Transmission Date: 20200409
  Serious: Yes (Hospitalization)
  Sender: FDA-Public Use
  Company Number: NL-MYLANLABS-2020M1030491

PATIENT
  Sex: Male
  Weight: 88 kg

DRUGS (9)
  1. GABAPENTIN. [Suspect]
     Active Substance: GABAPENTIN
     Dosage: 400 MG (MILLIGRAM)
  2. GABAPENTIN. [Suspect]
     Active Substance: GABAPENTIN
     Dosage: 400 MG (MILLIGRAM)
  3. POVIDON [Concomitant]
     Dosage: OOGDRUPPELS, 50 MG/ML (MILLIGRAM PER MILLILITER)
  4. IRBESARTAN. [Concomitant]
     Active Substance: IRBESARTAN
     Dosage: TABLET, 300 MG (MILLIGRAM)
  5. ROSUVASTATINE                      /01588601/ [Concomitant]
     Active Substance: ROSUVASTATIN
     Dosage: FILMOMHULDE TABLET, 5 MG (MILLIGRAM)
  6. PANTOPRAZOL                        /01263201/ [Concomitant]
     Active Substance: PANTOPRAZOLE
     Dosage: MAAGSAPRESISTENTE TABLET, 40 MG (MILLIGRAM)
  7. GABAPENTIN. [Suspect]
     Active Substance: GABAPENTIN
     Indication: POLYNEUROPATHY
     Dosage: 400 MG, ONCE PER DAY BUILD UP ONCE A DAY, THEN TWICE A DAY. UNTIL HE CAN TAKE 3 TIMES A DAY
     Dates: start: 20181018, end: 20181113
  8. BECLOMETASONE;FORMOTEROL [Concomitant]
     Active Substance: BECLOMETHASONE\FORMOTEROL
     Dosage: AEROSOL, 100/6 ?G/DOSIS (MICROGRAM PER DOSIS)
  9. SOTALOL. [Concomitant]
     Active Substance: SOTALOL
     Dosage: 80 MILLIGRAM

REACTIONS (3)
  - Pharyngeal swelling [Recovered/Resolved]
  - Dyspnoea [Recovered/Resolved]
  - Hallucination [Recovered/Resolved]
